FAERS Safety Report 15919437 (Version 1)
Quarter: 2019Q1

REPORT INFORMATION
  Report Type: Spontaneous
  Country: US (occurrence: US)
  Receive Date: 20190205
  Receipt Date: 20190205
  Transmission Date: 20190417
  Serious: No
  Sender: FDA-Public Use
  Company Number: US-ROCHE-2071516

PATIENT
  Sex: Female

DRUGS (8)
  1. LASIX [Concomitant]
     Active Substance: FUROSEMIDE
     Route: 065
  2. TRICORT [Concomitant]
     Active Substance: TRIAMCINOLONE ACETONIDE
     Route: 065
  3. XOLAIR [Suspect]
     Active Substance: OMALIZUMAB
     Indication: PRURITUS
     Route: 065
  4. HYDROXYZINE [Concomitant]
     Active Substance: HYDROXYZINE HYDROCHLORIDE
     Route: 065
  5. INSULIN [Concomitant]
     Active Substance: INSULIN NOS
  6. REMICADE [Suspect]
     Active Substance: INFLIXIMAB
     Indication: PRODUCT USED FOR UNKNOWN INDICATION
     Dosage: DOSE- 20 NML
     Route: 065
  7. VITAMIN D3 [Concomitant]
     Active Substance: CHOLECALCIFEROL
     Dosage: 50000 UNITS
     Route: 065
  8. QUINAPRIL. [Concomitant]
     Active Substance: QUINAPRIL
     Route: 065

REACTIONS (6)
  - Intentional product use issue [Unknown]
  - Dyspnoea [Unknown]
  - Palpitations [Unknown]
  - Erythema [Unknown]
  - Blood pressure increased [Unknown]
  - Off label use [Unknown]
